FAERS Safety Report 20467129 (Version 1)
Quarter: 2022Q1

REPORT INFORMATION
  Report Type: Report from Study
  Country: KR (occurrence: KR)
  Receive Date: 20220214
  Receipt Date: 20220214
  Transmission Date: 20220423
  Serious: Yes (Hospitalization, Other)
  Sender: FDA-Public Use
  Company Number: KR-TAKEDA-2022TUS008441

PATIENT
  Age: 83 Year
  Sex: Female
  Weight: 55.7 kg

DRUGS (17)
  1. IXAZOMIB [Suspect]
     Active Substance: IXAZOMIB
     Indication: Plasma cell myeloma
     Dosage: 2.3 MILLIGRAM, QD
     Route: 065
     Dates: start: 20210906
  2. DEXAMETHASONE [Suspect]
     Active Substance: DEXAMETHASONE
     Indication: Plasma cell myeloma
     Dosage: 10 MILLIGRAM, QD
     Route: 065
     Dates: start: 20210906
  3. DEXAMETHASONE [Suspect]
     Active Substance: DEXAMETHASONE
     Dosage: 5 MILLIGRAM, QD
     Route: 042
     Dates: start: 20210906
  4. LENALIDOMIDE [Suspect]
     Active Substance: LENALIDOMIDE
     Indication: Plasma cell myeloma
     Dosage: 5 MILLIGRAM, QD
     Route: 065
     Dates: start: 20210906
  5. MAGNESIUM HYDROXIDE [Concomitant]
     Active Substance: MAGNESIUM HYDROXIDE
     Indication: Constipation
     Dosage: 500 MILLIGRAM, TID
     Route: 048
  6. CNU [Concomitant]
     Indication: Cholecystectomy
     Dosage: 500 MILLIGRAM, TID
     Route: 048
  7. MUCOSINIL [Concomitant]
     Indication: Secretion discharge
     Dosage: 200 MILLIGRAM, TID
     Route: 048
  8. Zoylex [Concomitant]
     Indication: Antiviral prophylaxis
     Dosage: 400 MILLIGRAM, QD
     Route: 048
  9. RABIET [Concomitant]
     Indication: Prophylaxis
     Dosage: 10 MILLIGRAM, QD
     Route: 048
  10. LEXAPRO [Concomitant]
     Active Substance: ESCITALOPRAM OXALATE
     Indication: Prophylaxis
     Dosage: 10 MILLIGRAM, QD
     Route: 048
  11. REXFORGE Q [Concomitant]
     Indication: Hypertension
     Dosage: UNK UNK, QD
     Route: 048
  12. DICAMAX D PLUS [Concomitant]
     Indication: Osteoporosis prophylaxis
     Dosage: 250 MILLIGRAM, QD
     Route: 048
     Dates: start: 20210910
  13. DIFLUCAN [Concomitant]
     Active Substance: FLUCONAZOLE
     Indication: Antiviral prophylaxis
     Dosage: 5 MILLILITER, QD
     Route: 048
     Dates: start: 20210906
  14. NUCYNTA [Concomitant]
     Active Substance: TAPENTADOL HYDROCHLORIDE
     Indication: Prophylaxis
     Dosage: 50 MILLIGRAM, BID
     Route: 048
     Dates: start: 20210910
  15. SULFAMETHOXAZOLE\TRIMETHOPRIM [Concomitant]
     Active Substance: SULFAMETHOXAZOLE\TRIMETHOPRIM
     Indication: Antiviral prophylaxis
     Dosage: UNK UNK, BID
     Route: 048
     Dates: start: 20210911
  16. XGEVA [Concomitant]
     Active Substance: DENOSUMAB
     Indication: Prophylaxis
     Dosage: 120 MILLIGRAM, QD
     Route: 058
     Dates: start: 20210910
  17. LEVOFLOXACIN [Concomitant]
     Active Substance: LEVOFLOXACIN
     Indication: Antiviral prophylaxis
     Dosage: 500 MILLIGRAM, QD
     Route: 048
     Dates: start: 20210906

REACTIONS (1)
  - Spinal fracture [Not Recovered/Not Resolved]

NARRATIVE: CASE EVENT DATE: 20211227
